FAERS Safety Report 12823106 (Version 1)
Quarter: 2016Q4

REPORT INFORMATION
  Report Type: Spontaneous
  Country: US (occurrence: US)
  Receive Date: 20161006
  Receipt Date: 20161006
  Transmission Date: 20170207
  Serious: No
  Sender: FDA-Public Use
  Company Number: None

PATIENT
  Sex: Female
  Weight: 62.14 kg

DRUGS (3)
  1. TOPIRAMATE NDC: 13668-0032-05 50MG TORRENT PHARMACEUTICALS [Suspect]
     Active Substance: TOPIRAMATE
     Indication: MIGRAINE
     Route: 048
     Dates: start: 20121226, end: 20130128
  2. TOPIRAMATE NDC:62756-0710-13 50MG SUN PHARMACEUTICALS [Suspect]
     Active Substance: TOPIRAMATE
     Indication: MIGRAINE
     Route: 048
     Dates: start: 20130227, end: 20140220
  3. TOPIRAMATE NDC:31722-0279-60 50MG CAMBER PHARMACEUTICALS [Suspect]
     Active Substance: TOPIRAMATE
     Indication: MIGRAINE
     Route: 048
     Dates: start: 20121019, end: 20121226

REACTIONS (2)
  - Product substitution issue [None]
  - Drug effect decreased [None]
